FAERS Safety Report 24297129 (Version 7)
Quarter: 2025Q2

REPORT INFORMATION
  Report Type: Spontaneous
  Country: US (occurrence: US)
  Receive Date: 20240909
  Receipt Date: 20250627
  Transmission Date: 20250717
  Serious: No
  Sender: SANOFI AVENTIS
  Company Number: US-SA-2024SA259611

PATIENT
  Age: 51 Year
  Sex: Male

DRUGS (3)
  1. DUPIXENT [Suspect]
     Active Substance: DUPILUMAB
     Indication: Asthma
     Dosage: 300 MG, QOW
     Route: 058
     Dates: start: 202307
  2. IBUPROFEN [Concomitant]
     Active Substance: IBUPROFEN
  3. SOMATROPIN [Concomitant]
     Active Substance: SOMATROPIN

REACTIONS (9)
  - Influenza [Unknown]
  - Head discomfort [Unknown]
  - Ear disorder [Unknown]
  - Respiration abnormal [Unknown]
  - Discomfort [Unknown]
  - Balance disorder [Unknown]
  - Headache [Unknown]
  - Dizziness [Unknown]
  - Urinary tract infection [Unknown]

NARRATIVE: CASE EVENT DATE: 20240101
